FAERS Safety Report 24017048 (Version 4)
Quarter: 2024Q3

REPORT INFORMATION
  Report Type: Spontaneous
  Country: JP (occurrence: JP)
  Receive Date: 20240626
  Receipt Date: 20240909
  Transmission Date: 20241017
  Serious: Yes (Hospitalization, Other)
  Sender: NOVARTIS
  Company Number: JP-002147023-NVSJ2024JP007360

PATIENT
  Age: 88 Year
  Sex: Female
  Weight: 42.1 kg

DRUGS (9)
  1. ENTRESTO [Suspect]
     Active Substance: SACUBITRIL\VALSARTAN
     Indication: Hypertension
     Dosage: 100 MG
     Route: 048
     Dates: start: 20240425, end: 20240531
  2. LOXOPROFEN SODIUM [Concomitant]
     Active Substance: LOXOPROFEN SODIUM
     Indication: Product used for unknown indication
     Dosage: 60 MG, AT THE TIME OF PAIN
     Route: 048
  3. BERAPROST SODIUM [Concomitant]
     Active Substance: BERAPROST SODIUM
     Indication: Product used for unknown indication
     Dosage: 20 UG, TID
     Route: 048
  4. MOSAPRIDE CITRATE [Concomitant]
     Active Substance: MOSAPRIDE CITRATE
     Indication: Product used for unknown indication
     Dosage: 5 MG, TID
     Route: 048
  5. IFENPRODIL TARTRATE [Concomitant]
     Active Substance: IFENPRODIL TARTRATE
     Indication: Product used for unknown indication
     Dosage: 20 MG, TID
     Route: 048
  6. BISOPROLOL [Concomitant]
     Active Substance: BISOPROLOL\BISOPROLOL FUMARATE
     Indication: Product used for unknown indication
     Dosage: 0.625 MG, QD
     Route: 048
  7. PREGABALIN [Concomitant]
     Active Substance: PREGABALIN
     Indication: Product used for unknown indication
     Dosage: 25 MG, BID
     Route: 048
  8. SENNOSIDES [Concomitant]
     Active Substance: SENNOSIDES
     Indication: Product used for unknown indication
     Dosage: 24 MG, QD
     Route: 048
  9. TIQUIZIUM BROMIDE [Concomitant]
     Active Substance: TIQUIZIUM BROMIDE
     Indication: Product used for unknown indication
     Dosage: 10 MG, QD
     Route: 048

REACTIONS (10)
  - Pleural effusion [Not Recovered/Not Resolved]
  - Ascites [Not Recovered/Not Resolved]
  - Hypoalbuminaemia [Unknown]
  - Capillary permeability increased [Recovered/Resolved]
  - Oedema [Unknown]
  - Blood pressure decreased [Not Recovered/Not Resolved]
  - Lymphocyte count decreased [Unknown]
  - Acute kidney injury [Recovered/Resolved]
  - Movement disorder [Recovered/Resolved]
  - Decreased appetite [Recovered/Resolved]

NARRATIVE: CASE EVENT DATE: 20240531
